FAERS Safety Report 25533266 (Version 1)
Quarter: 2025Q3

REPORT INFORMATION
  Report Type: Spontaneous
  Country: EU (occurrence: EU)
  Receive Date: 20250709
  Receipt Date: 20250709
  Transmission Date: 20251021
  Serious: Yes (Life-Threatening, Disabling, Other)
  Sender: AUROBINDO
  Company Number: EU-URPL-DML-MLP.4401.1.5742.2021

PATIENT
  Age: 18 Year
  Sex: Female
  Weight: 68 kg

DRUGS (1)
  1. ACETAMINOPHEN [Suspect]
     Active Substance: ACETAMINOPHEN
     Indication: Product used for unknown indication
     Route: 048
     Dates: start: 20210102, end: 20210102

REACTIONS (7)
  - Nausea [Unknown]
  - Vomiting [Unknown]
  - Abdominal pain [Unknown]
  - Acute hepatic failure [Unknown]
  - Intentional self-injury [Unknown]
  - Toxicity to various agents [Unknown]
  - Liver transplant [Unknown]

NARRATIVE: CASE EVENT DATE: 20210102
